FAERS Safety Report 24526767 (Version 1)
Quarter: 2024Q4

REPORT INFORMATION
  Report Type: Spontaneous
  Country: NL (occurrence: NL)
  Receive Date: 20241021
  Receipt Date: 20241021
  Transmission Date: 20250114
  Serious: No
  Sender: ROCHE
  Company Number: NL-ROCHE-3492114

PATIENT
  Age: 47 Year
  Sex: Female

DRUGS (2)
  1. ZELBORAF [Suspect]
     Active Substance: VEMURAFENIB
     Indication: Metastatic neoplasm
     Route: 065
     Dates: start: 202310
  2. COTELLIC [Suspect]
     Active Substance: COBIMETINIB
     Indication: Metastatic neoplasm
     Route: 065
     Dates: start: 202310

REACTIONS (3)
  - Diarrhoea [Unknown]
  - Adverse food reaction [Unknown]
  - Skin papilloma [Unknown]
